FAERS Safety Report 11746281 (Version 1)
Quarter: 2015Q4

REPORT INFORMATION
  Report Type: Spontaneous
  Country: US (occurrence: None)
  Receive Date: 20151116
  Receipt Date: 20151116
  Transmission Date: 20160304
  Serious: Yes (Disabling)
  Sender: FDA-Public Use
  Company Number: None

PATIENT
  Age: 64 Year
  Sex: Female
  Weight: 65.77 kg

DRUGS (5)
  1. VITAMIN D [Concomitant]
     Active Substance: CHOLECALCIFEROL
  2. LEVOTHYROXIN [Concomitant]
     Active Substance: LEVOTHYROXINE
  3. METROPOLOL [Concomitant]
     Active Substance: METOPROLOL
  4. TUMS [Concomitant]
     Active Substance: CALCIUM CARBONATE
  5. WOMENS ROGAINE UNSCENTED [Suspect]
     Active Substance: MINOXIDIL
     Indication: ALOPECIA
     Dosage: HALF CAPFUL; TOPICAL APPLIED TO SCALP
     Route: 061
     Dates: start: 20150216, end: 20150406

REACTIONS (1)
  - Headache [None]

NARRATIVE: CASE EVENT DATE: 20150216
